FAERS Safety Report 9829795 (Version 1)
Quarter: 2014Q1

REPORT INFORMATION
  Report Type: Spontaneous
  Country: FR (occurrence: FR)
  Receive Date: 20140120
  Receipt Date: 20140120
  Transmission Date: 20141002
  Serious: Yes (Hospitalization)
  Sender: FDA-Public Use
  Company Number: FR-ASTRAZENECA-2014SE03237

PATIENT
  Age: 31420 Day
  Sex: Female

DRUGS (10)
  1. ATACAND [Suspect]
     Route: 048
  2. LASILIX [Suspect]
     Route: 048
  3. LASILIX [Suspect]
     Route: 048
  4. LASILIX [Suspect]
     Route: 048
  5. ALDACTONE [Suspect]
     Route: 048
     Dates: end: 20131125
  6. EUPANTHOL [Suspect]
     Route: 048
     Dates: end: 20131125
  7. LEVOTHYROX [Concomitant]
  8. PREVISCAN [Concomitant]
  9. GAVISCON [Concomitant]
  10. STILNOX [Concomitant]

REACTIONS (5)
  - Asthma [Unknown]
  - Bronchitis [Unknown]
  - Cardiac failure [Unknown]
  - Hyponatraemia [Recovered/Resolved]
  - Renal failure acute [Recovering/Resolving]
